FAERS Safety Report 5637118-1 (Version None)
Quarter: 2008Q1

REPORT INFORMATION
  Report Type: 
  Country: None (occurrence: None)
  Receive Date: 20080225
  Receipt Date: 20071106
  Transmission Date: 20080703
  Serious: No
  Sender: FDA-Public Use
  Company Number: US-BRISTOL-MYERS SQUIBB COMPANY-13972047

PATIENT
  Age: 53 Year
  Sex: Male
  Weight: 171 kg

DRUGS (3)
  1. GLUCOPHAGE [Suspect]
  2. PLAVIX [Suspect]
  3. VANCOMYCIN [Concomitant]

REACTIONS (2)
  - OEDEMA PERIPHERAL [None]
  - WOUND [None]
